FAERS Safety Report 4764614-1 (Version None)
Quarter: 2005Q3

REPORT INFORMATION
  Report Type: 
  Country: None (occurrence: None)
  Receive Date: 20050909
  Receipt Date: 20050819
  Transmission Date: 20060218
  Serious: Yes (Disabling)
  Sender: FDA-Public Use
  Company Number: 2005AP04545

PATIENT
  Age: 27897 Day
  Sex: Male

DRUGS (4)
  1. XYLOCAINE W/ EPINEPHRINE [Suspect]
     Indication: INFILTRATION ANAESTHESIA
     Route: 042
     Dates: start: 20050811, end: 20050811
  2. NU-LOTAN [Concomitant]
     Indication: HYPERTENSION
     Route: 048
     Dates: start: 20050301
  3. NORVASC [Concomitant]
     Indication: HYPERTENSION
     Route: 048
     Dates: start: 20050301, end: 20050812
  4. FLUITRAN [Concomitant]
     Indication: HYPERTENSION
     Route: 048
     Dates: start: 20050701, end: 20050812

REACTIONS (2)
  - ANGLE CLOSURE GLAUCOMA [None]
  - HEADACHE [None]
